FAERS Safety Report 9714012 (Version 2)
Quarter: 2015Q3

REPORT INFORMATION
  Report Type: Spontaneous
  Country: US (occurrence: US)
  Receive Date: 20131126
  Receipt Date: 20150803
  Transmission Date: 20151125
  Serious: No
  Sender: FDA-Public Use
  Company Number: US-GILEAD-2008-0018519

PATIENT
  Age: 73 Year
  Sex: Female

DRUGS (18)
  1. VITAMIN E [Concomitant]
     Active Substance: .ALPHA.-TOCOPHEROL
  2. LUNETA [Concomitant]
  3. PROBIOTIC [Concomitant]
     Active Substance: PROBIOTICS NOS
  4. SILYMARIN [Concomitant]
     Active Substance: MILK THISTLE
  5. RANITIDINE [Concomitant]
     Active Substance: RANITIDINE\RANITIDINE HYDROCHLORIDE
  6. CITRACAL +D [Concomitant]
  7. DRY [Concomitant]
  8. AMARYL [Concomitant]
     Active Substance: GLIMEPIRIDE
  9. NADOLOL. [Concomitant]
     Active Substance: NADOLOL
  10. COUMADIN [Concomitant]
     Active Substance: WARFARIN SODIUM
  11. FLEXERIL [Concomitant]
     Active Substance: CYCLOBENZAPRINE HYDROCHLORIDE
  12. JANUVIA [Concomitant]
     Active Substance: SITAGLIPTIN PHOSPHATE
  13. LETAIRIS [Suspect]
     Active Substance: AMBRISENTAN
     Indication: PULMONARY ARTERIAL HYPERTENSION
     Route: 048
     Dates: start: 20080918, end: 20080922
  14. DIGOXIN. [Concomitant]
     Active Substance: DIGOXIN
  15. METFORMIN [Concomitant]
     Active Substance: METFORMIN HYDROCHLORIDE
  16. LEVOTHYROXINE. [Concomitant]
     Active Substance: LEVOTHYROXINE
  17. CHLORPROMAZINE. [Concomitant]
     Active Substance: CHLORPROMAZINE
  18. CYTOMEL [Concomitant]
     Active Substance: LIOTHYRONINE SODIUM

REACTIONS (1)
  - Dyspnoea [Recovered/Resolved]

NARRATIVE: CASE EVENT DATE: 20080921
